FAERS Safety Report 21669781 (Version 1)
Quarter: 2022Q4

REPORT INFORMATION
  Report Type: Spontaneous
  Country: US (occurrence: US)
  Receive Date: 20221201
  Receipt Date: 20221201
  Transmission Date: 20230113
  Serious: No
  Sender: FDA-Public Use
  Company Number: US-BAYER-2022A154633

PATIENT
  Age: 65 Year
  Sex: Female

DRUGS (2)
  1. LORATADINE [Suspect]
     Active Substance: LORATADINE
     Indication: Rhinorrhoea
     Route: 048
  2. FLUTICASONE [Suspect]
     Active Substance: FLUTICASONE
     Route: 061

REACTIONS (1)
  - Drug ineffective [Unknown]
